FAERS Safety Report 14701235 (Version 1)
Quarter: 2018Q1

REPORT INFORMATION
  Report Type: Spontaneous
  Country: US (occurrence: US)
  Receive Date: 20180328
  Receipt Date: 20180328
  Transmission Date: 20180509
  Serious: Yes (Hospitalization)
  Sender: FDA-Public Use
  Company Number: None

PATIENT
  Age: 65 Year
  Sex: Male
  Weight: 73.1 kg

DRUGS (1)
  1. OXALIPLATIN 5MG/ML 20 ML VIAL TEVA [Suspect]
     Active Substance: OXALIPLATIN
     Dosage: 162 MG EVERY 14 DAYS INTRAVENOUS
     Route: 042
     Dates: start: 20180209, end: 20180223

REACTIONS (3)
  - Flushing [None]
  - Infusion related reaction [None]
  - Dyspnoea [None]

NARRATIVE: CASE EVENT DATE: 20180323
